FAERS Safety Report 9908452 (Version 2)
Quarter: 2014Q1

REPORT INFORMATION
  Report Type: Spontaneous
  Country: US (occurrence: US)
  Receive Date: 20140219
  Receipt Date: 20140224
  Transmission Date: 20141002
  Serious: No
  Sender: FDA-Public Use
  Company Number: US-009507513-1402USA009062

PATIENT
  Age: 64 Year
  Sex: Female
  Weight: 92.97 kg

DRUGS (9)
  1. OXYTROL FOR WOMEN [Suspect]
     Indication: PRODUCT USED FOR UNKNOWN INDICATION
     Dosage: 1 DF, Q4D
     Route: 062
     Dates: start: 20140101, end: 20140120
  2. OXYTROL FOR WOMEN [Suspect]
     Indication: MICTURITION URGENCY
  3. OXYTROL FOR WOMEN [Suspect]
     Indication: HYPERTONIC BLADDER
  4. OXYTROL FOR WOMEN [Suspect]
     Indication: INCONTINENCE
  5. LISINOPRIL [Concomitant]
     Indication: HYPERTENSION
     Dosage: 20 MG, UNKNOWN
  6. AMLODIPINE [Concomitant]
     Indication: HYPERTENSION
     Dosage: 5 MG, UNKNOWN
  7. NABUMETONE [Concomitant]
     Indication: ARTHRITIS
     Dosage: 750 MG, UNKNOWN
  8. NABUMETONE [Concomitant]
     Indication: BURSITIS
  9. SIMVASTATIN [Concomitant]
     Indication: BLOOD CHOLESTEROL INCREASED
     Dosage: 40 MG, UNKNOWN

REACTIONS (4)
  - Skin irritation [Recovering/Resolving]
  - Erythema [Recovering/Resolving]
  - Pruritus [Recovering/Resolving]
  - Drug effect decreased [Unknown]
